FAERS Safety Report 14356836 (Version 2)
Quarter: 2018Q1

REPORT INFORMATION
  Report Type: Spontaneous
  Country: IT (occurrence: IT)
  Receive Date: 20180105
  Receipt Date: 20180118
  Transmission Date: 20180509
  Serious: Yes (Life-Threatening, Hospitalization, Other)
  Sender: FDA-Public Use
  Company Number: IT-TEVA-2017-IT-842319

PATIENT
  Age: 73 Year
  Sex: Female

DRUGS (6)
  1. AMILORIDE [Concomitant]
     Active Substance: AMILORIDE
     Indication: HYPERTENSION
     Route: 065
  2. CLOMIPRAMINE [Suspect]
     Active Substance: CLOMIPRAMINE
     Indication: DEPRESSION
     Route: 065
  3. REBOXETINE [Suspect]
     Active Substance: REBOXETINE
     Indication: DEPRESSION
     Route: 065
  4. DIAZEPAM. [Suspect]
     Active Substance: DIAZEPAM
     Indication: DEPRESSION
     Route: 065
  5. FUROSEMIDE. [Suspect]
     Active Substance: FUROSEMIDE
     Route: 065
  6. HYDROCHLOROTHIAZIDE. [Suspect]
     Active Substance: HYDROCHLOROTHIAZIDE
     Route: 065

REACTIONS (2)
  - Hypokalaemia [Recovering/Resolving]
  - Cardiac arrest [Recovered/Resolved]
